FAERS Safety Report 7263562-5 (Version None)
Quarter: 2011Q1

REPORT INFORMATION
  Report Type: 
  Country: None (occurrence: None)
  Receive Date: 20110130
  Receipt Date: 20101203
  Transmission Date: 20110831
  Serious: No
  Sender: FDA-Public Use
  Company Number: US-ABBOTT-10P-163-0689620-00

PATIENT
  Age: 45 Year
  Sex: Female

DRUGS (8)
  1. LYRICA [Concomitant]
     Indication: FIBROMYALGIA
  2. ALLBUTEROL BREATHING TREATMENT PER NEBULIZER [Concomitant]
     Indication: ASTHMA
  3. PHENERGAN HCL [Concomitant]
     Indication: NAUSEA
  4. XANAX [Concomitant]
     Indication: DEPRESSION
  5. VENTOLIN [Concomitant]
     Indication: ASTHMA
  6. OXYGEN [Concomitant]
     Indication: SLEEP DISORDER THERAPY
  7. HUMIRA [Suspect]
     Indication: CROHN'S DISEASE
     Dates: start: 20101001
  8. ZOLOFT [Concomitant]
     Indication: DEPRESSION

REACTIONS (3)
  - URINE ODOUR ABNORMAL [None]
  - FOOD CRAVING [None]
  - NICOTINE DEPENDENCE [None]
